FAERS Safety Report 8571274-0 (Version None)
Quarter: 2012Q3

REPORT INFORMATION
  Report Type: 
  Country: None (occurrence: None)
  Receive Date: 20120806
  Receipt Date: 20120727
  Transmission Date: 20120928
  Serious: Yes (Other)
  Sender: FDA-Public Use
  Company Number: US-009507513-1208USA000233

PATIENT

DRUGS (3)
  1. REBETOL [Suspect]
     Indication: HEPATITIS C
     Dosage: UNK
     Route: 048
     Dates: start: 20120505
  2. PEG-INTRON [Suspect]
     Indication: HEPATITIS C
     Dosage: UNK
     Dates: start: 20120505
  3. VICTRELIS [Suspect]
     Indication: HEPATITIS C
     Dosage: UNK
     Route: 048
     Dates: start: 20120603, end: 20120706

REACTIONS (10)
  - HEADACHE [None]
  - TOOTH EXTRACTION [None]
  - HAEMATEMESIS [None]
  - DRUG INEFFECTIVE [None]
  - WEIGHT DECREASED [None]
  - TOOTH INFECTION [None]
  - SKIN INJURY [None]
  - VOMITING [None]
  - PAIN IN JAW [None]
  - WHITE BLOOD CELL COUNT DECREASED [None]
